FAERS Safety Report 18255032 (Version 7)
Quarter: 2021Q2

REPORT INFORMATION
  Report Type: Spontaneous
  Country: DE (occurrence: DE)
  Receive Date: 20200910
  Receipt Date: 20210610
  Transmission Date: 20210717
  Serious: Yes (Hospitalization, Other)
  Sender: FDA-Public Use
  Company Number: NVSC2020DE191265

PATIENT
  Sex: Female

DRUGS (59)
  1. VALSARTAN. [Suspect]
     Active Substance: VALSARTAN
     Indication: HYPERTENSION
     Dosage: 2 DF, QD(1X80MG(160 MG DAILY DOSE)
     Route: 065
     Dates: start: 201202, end: 201711
  2. VALSARTAN. [Suspect]
     Active Substance: VALSARTAN
     Dosage: 80 MG
     Route: 065
     Dates: start: 20130221
  3. VALSARTAN. [Suspect]
     Active Substance: VALSARTAN
     Dosage: 80 MG
     Route: 065
     Dates: start: 20130321
  4. VALSARTAN. [Suspect]
     Active Substance: VALSARTAN
     Dosage: 80 MG
     Route: 065
     Dates: start: 20131029
  5. VALSARTAN. [Suspect]
     Active Substance: VALSARTAN
     Dosage: 80 MG
     Route: 065
     Dates: start: 20140612
  6. VALSARTAN. [Suspect]
     Active Substance: VALSARTAN
     Dosage: 80 MG
     Route: 065
     Dates: start: 20150105
  7. VALSARTAN. [Suspect]
     Active Substance: VALSARTAN
     Dosage: 80 MG
     Route: 065
     Dates: start: 20160630
  8. VALSARTAN ? 1 A PHARMA PLUS 80 MG/12,5 MG FILMTABLETTEN [Suspect]
     Active Substance: HYDROCHLOROTHIAZIDE\VALSARTAN
     Dosage: 80 MG / 12.5 MG
     Route: 065
     Dates: start: 20170131
  9. VALSARTAN ? 1 A PHARMA PLUS 80 MG/12,5 MG FILMTABLETTEN [Suspect]
     Active Substance: HYDROCHLOROTHIAZIDE\VALSARTAN
     Dosage: 80 MG / 12.5 MG
     Route: 065
     Dates: start: 20170323
  10. VALSARTAN ? 1 A PHARMA PLUS 80 MG/12,5 MG FILMTABLETTEN [Suspect]
     Active Substance: HYDROCHLOROTHIAZIDE\VALSARTAN
     Dosage: 80 MG / 12.5 MG
     Route: 065
     Dates: start: 20171116
  11. BELOC ZOK MITE [Concomitant]
     Active Substance: METOPROLOL SUCCINATE
     Indication: PRODUCT USED FOR UNKNOWN INDICATION
     Dosage: 47.5 UNK, BID (MORNING AND EVENING)
     Route: 065
  12. VALSARTAN. [Suspect]
     Active Substance: VALSARTAN
     Dosage: 80 MG
     Route: 065
     Dates: start: 20120730
  13. VALSARTAN. [Suspect]
     Active Substance: VALSARTAN
     Dosage: 80 MG
     Route: 065
     Dates: start: 20130330
  14. VALSARTAN. [Suspect]
     Active Substance: VALSARTAN
     Dosage: 80 MG
     Route: 065
     Dates: start: 20140220
  15. VALSARTAN. [Suspect]
     Active Substance: VALSARTAN
     Dosage: 80 MG
     Route: 065
     Dates: start: 20160104
  16. VALSARTAN ? 1 A PHARMA PLUS 80 MG/12,5 MG FILMTABLETTEN [Suspect]
     Active Substance: HYDROCHLOROTHIAZIDE\VALSARTAN
     Dosage: 80 MG / 12.5 MG
     Route: 065
     Dates: start: 20160531
  17. VALSARTAN ? 1 A PHARMA PLUS 80 MG/12,5 MG FILMTABLETTEN [Suspect]
     Active Substance: HYDROCHLOROTHIAZIDE\VALSARTAN
     Dosage: 80 MG / 12.5 MG
     Route: 065
     Dates: start: 20170516
  18. REMIFEMIN [Concomitant]
     Active Substance: BLACK COHOSH
     Indication: MENOPAUSE
     Dosage: 1 DF, QD (IN THE MORNING)
     Route: 065
  19. VALSARTAN. [Suspect]
     Active Substance: VALSARTAN
     Dosage: 80 MG
     Route: 065
     Dates: start: 20120618
  20. VALSARTAN ? 1 A PHARMA PLUS 80 MG/12,5 MG FILMTABLETTEN [Suspect]
     Active Substance: HYDROCHLOROTHIAZIDE\VALSARTAN
     Dosage: 80 MG / 12.5 MG
     Route: 065
     Dates: start: 20160223
  21. VALSARTAN ? 1 A PHARMA PLUS 80 MG/12,5 MG FILMTABLETTEN [Suspect]
     Active Substance: HYDROCHLOROTHIAZIDE\VALSARTAN
     Dosage: 80 MG / 12.5 MG
     Route: 065
     Dates: start: 20160701
  22. FLUVACCIN [Concomitant]
     Active Substance: INFLUENZA VIRUS VACCINE
     Indication: PRODUCT USED FOR UNKNOWN INDICATION
     Dosage: UNK
     Route: 065
     Dates: start: 20120928
  23. PETIBELLE [Concomitant]
     Active Substance: DROSPIRENONE\ETHINYL ESTRADIOL
     Indication: MENOPAUSE
     Dosage: UNK
     Route: 065
     Dates: end: 201506
  24. VALSARTAN. [Suspect]
     Active Substance: VALSARTAN
     Dosage: 80 MG
     Route: 065
     Dates: start: 20160404
  25. VALSARTAN. [Suspect]
     Active Substance: VALSARTAN
     Dosage: 80 MG
     Route: 065
     Dates: start: 20160825
  26. VALSARTAN. [Suspect]
     Active Substance: VALSARTAN
     Dosage: 80 MG
     Route: 065
     Dates: start: 20171115
  27. VALSARTAN ? 1 A PHARMA PLUS 80 MG/12,5 MG FILMTABLETTEN [Suspect]
     Active Substance: HYDROCHLOROTHIAZIDE\VALSARTAN
     Dosage: 80 MG / 12.5 MG
     Route: 065
     Dates: start: 20150728
  28. VALSARTAN ? 1 A PHARMA PLUS 80 MG/12,5 MG FILMTABLETTEN [Suspect]
     Active Substance: HYDROCHLOROTHIAZIDE\VALSARTAN
     Dosage: 80 MG / 12.5 MG
     Route: 065
     Dates: start: 20170801
  29. LUMIGAN [Concomitant]
     Active Substance: BIMATOPROST
     Indication: PRODUCT USED FOR UNKNOWN INDICATION
     Dosage: UNK UNK, QD (EVENING)
     Route: 065
  30. VALSARTAN. [Suspect]
     Active Substance: VALSARTAN
     Dosage: 80 MG / 12.5 MG, BID
     Route: 065
     Dates: start: 20120423, end: 201409
  31. VALSARTAN. [Suspect]
     Active Substance: VALSARTAN
     Dosage: 80 MG
     Route: 065
     Dates: start: 20160526
  32. VALSARTAN. [Suspect]
     Active Substance: VALSARTAN
     Dosage: UNK
     Route: 065
     Dates: end: 201801
  33. VALSARTAN ? 1 A PHARMA PLUS 80 MG/12,5 MG FILMTABLETTEN [Suspect]
     Active Substance: HYDROCHLOROTHIAZIDE\VALSARTAN
     Dosage: 80 MG / 12.5 MG
     Route: 065
     Dates: start: 20161212
  34. FLUVACCIN [Concomitant]
     Active Substance: INFLUENZA VIRUS VACCINE
     Dosage: UNK
     Route: 065
     Dates: start: 20131029
  35. FLUVACCIN [Concomitant]
     Active Substance: INFLUENZA VIRUS VACCINE
     Dosage: UNK
     Route: 065
     Dates: start: 20151103
  36. POLIOMYELITIS VACCINE NOS [Concomitant]
     Active Substance: POLIOMYELITIS VACCINE
     Indication: PRODUCT USED FOR UNKNOWN INDICATION
     Dosage: UNK
     Route: 065
     Dates: start: 20130930
  37. VALSARTAN. [Suspect]
     Active Substance: VALSARTAN
     Dosage: 80 MG
     Route: 065
     Dates: start: 20140925
  38. VALSARTAN. [Suspect]
     Active Substance: VALSARTAN
     Dosage: 80 MG
     Route: 065
     Dates: start: 20151103
  39. VALSARTAN. [Suspect]
     Active Substance: VALSARTAN
     Dosage: UNK
     Route: 065
     Dates: start: 20161021
  40. VALSARTAN ? 1 A PHARMA PLUS 80 MG/12,5 MG FILMTABLETTEN [Suspect]
     Active Substance: HYDROCHLOROTHIAZIDE\VALSARTAN
     Indication: HYPERTENSION
     Dosage: 80 MG / 12.5 MG
     Route: 065
     Dates: start: 20140925, end: 201501
  41. VALSARTAN ? 1 A PHARMA PLUS 80 MG/12,5 MG FILMTABLETTEN [Suspect]
     Active Substance: HYDROCHLOROTHIAZIDE\VALSARTAN
     Dosage: 80 MG / 12.5 MG
     Route: 065
     Dates: start: 20161022
  42. VALSARTAN ? 1 A PHARMA PLUS 80 MG/12,5 MG FILMTABLETTEN [Suspect]
     Active Substance: HYDROCHLOROTHIAZIDE\VALSARTAN
     Dosage: 80 MG / 12.5 MG, BID
     Route: 065
     Dates: start: 201409, end: 201501
  43. CANDESARTAN. [Concomitant]
     Active Substance: CANDESARTAN
     Indication: PRODUCT USED FOR UNKNOWN INDICATION
     Dosage: UNK, QD
     Route: 065
  44. VALSARTAN. [Suspect]
     Active Substance: VALSARTAN
     Dosage: 80 MG
     Route: 065
     Dates: start: 20160222
  45. VALSARTAN ? 1 A PHARMA PLUS 80 MG/12,5 MG FILMTABLETTEN [Suspect]
     Active Substance: HYDROCHLOROTHIAZIDE\VALSARTAN
     Dosage: 80 MG / 12.5 MG
     Route: 065
     Dates: start: 20151103
  46. VALSARTAN ? 1 A PHARMA PLUS 80 MG/12,5 MG FILMTABLETTEN [Suspect]
     Active Substance: HYDROCHLOROTHIAZIDE\VALSARTAN
     Dosage: 80 MG / 12.5 MG
     Route: 065
     Dates: start: 20160411
  47. VALSARTAN ? 1 A PHARMA PLUS 80 MG/12,5 MG FILMTABLETTEN [Suspect]
     Active Substance: HYDROCHLOROTHIAZIDE\VALSARTAN
     Dosage: 80 MG / 12.5 MG, BID
     Route: 065
     Dates: start: 201504, end: 20180215
  48. VALSARTAN HEXAL COMP 80 MG/12,5 MG FILMTABLETTEN [Suspect]
     Active Substance: HYDROCHLOROTHIAZIDE\VALSARTAN
     Indication: HYPERTENSION
     Dosage: 80/12.5 MG, QD
     Route: 065
  49. FLUVACCIN [Concomitant]
     Active Substance: INFLUENZA VIRUS VACCINE
     Dosage: UNK
     Route: 065
     Dates: start: 20141016
  50. VALSARTAN. [Suspect]
     Active Substance: VALSARTAN
     Dosage: 80 MG
     Route: 065
     Dates: start: 20121105
  51. VALSARTAN. [Suspect]
     Active Substance: VALSARTAN
     Dosage: 80 MG
     Route: 065
     Dates: start: 20130830
  52. VALSARTAN. [Suspect]
     Active Substance: VALSARTAN
     Dosage: 80 MG
     Route: 065
     Dates: start: 20150416
  53. VALSARTAN. [Suspect]
     Active Substance: VALSARTAN
     Dosage: 80 MG
     Route: 065
     Dates: start: 20150723
  54. VALSARTAN ? 1 A PHARMA PLUS 80 MG/12,5 MG FILMTABLETTEN [Suspect]
     Active Substance: HYDROCHLOROTHIAZIDE\VALSARTAN
     Dosage: 80 MG / 12.5 MG
     Route: 065
     Dates: start: 20150423
  55. VALSARTAN ? 1 A PHARMA PLUS 80 MG/12,5 MG FILMTABLETTEN [Suspect]
     Active Substance: HYDROCHLOROTHIAZIDE\VALSARTAN
     Dosage: 80 MG / 12.5 MG
     Route: 065
     Dates: start: 20160104
  56. VALSARTAN ? 1 A PHARMA PLUS 80 MG/12,5 MG FILMTABLETTEN [Suspect]
     Active Substance: HYDROCHLOROTHIAZIDE\VALSARTAN
     Dosage: 80 MG / 12.5 MG
     Route: 065
     Dates: start: 20160905
  57. PARACETAMOL [Concomitant]
     Active Substance: ACETAMINOPHEN
     Indication: PRODUCT USED FOR UNKNOWN INDICATION
     Dosage: UNK
     Route: 065
  58. IBU [Concomitant]
     Active Substance: IBUPROFEN
     Indication: PRODUCT USED FOR UNKNOWN INDICATION
     Dosage: 600 DF, TID
     Route: 065
  59. PANTOPRAZOLE [Concomitant]
     Active Substance: PANTOPRAZOLE
     Indication: PRODUCT USED FOR UNKNOWN INDICATION
     Dosage: 20 DF, QD
     Route: 065

REACTIONS (40)
  - Wound secretion [Recovering/Resolving]
  - Haematoma [Recovering/Resolving]
  - Glaucoma [Unknown]
  - Haemorrhoids [Unknown]
  - Dry mouth [Not Recovered/Not Resolved]
  - Restlessness [Not Recovered/Not Resolved]
  - Iron deficiency [Unknown]
  - Insomnia [Unknown]
  - Nervousness [Unknown]
  - Blood loss anaemia [Unknown]
  - Cervical polyp [Unknown]
  - Fear of disease [Unknown]
  - Swelling [Recovering/Resolving]
  - Synovitis [Unknown]
  - Palpitations [Unknown]
  - Disturbance in attention [Unknown]
  - Hip deformity [Unknown]
  - Autoimmune thyroiditis [Unknown]
  - Rheumatic disorder [Unknown]
  - Uterine polyp [Unknown]
  - Cervicitis [Unknown]
  - Nausea [Not Recovered/Not Resolved]
  - Groin pain [Unknown]
  - Gait disturbance [Unknown]
  - Quality of life decreased [Unknown]
  - Anal pruritus [Unknown]
  - Blood pressure abnormal [Unknown]
  - Osteoarthritis [Unknown]
  - Emotional distress [Unknown]
  - Seasonal allergy [Unknown]
  - Obesity [Unknown]
  - Iron metabolism disorder [Unknown]
  - Nasopharyngitis [Unknown]
  - Hyperplasia [Unknown]
  - Headache [Not Recovered/Not Resolved]
  - Rhinitis allergic [Unknown]
  - Infection [Unknown]
  - Hypothyroidism [Unknown]
  - Fatigue [Unknown]
  - Pyrexia [Unknown]

NARRATIVE: CASE EVENT DATE: 2012
